FAERS Safety Report 24671664 (Version 2)
Quarter: 2024Q4

REPORT INFORMATION
  Report Type: Spontaneous
  Country: UA (occurrence: UA)
  Receive Date: 20241127
  Receipt Date: 20241202
  Transmission Date: 20250115
  Serious: Yes (Other)
  Sender: ABBVIE
  Company Number: UA-ABBVIE-6013382

PATIENT
  Age: 9 Year
  Sex: Male
  Weight: 29 kg

DRUGS (6)
  1. HUMIRA [Suspect]
     Active Substance: ADALIMUMAB
     Indication: Juvenile idiopathic arthritis
     Route: 058
     Dates: start: 202203, end: 202211
  2. HUMIRA [Suspect]
     Active Substance: ADALIMUMAB
     Indication: Crohn^s disease
     Route: 058
     Dates: start: 202301, end: 202302
  3. HUMIRA [Suspect]
     Active Substance: ADALIMUMAB
     Route: 058
     Dates: start: 2014, end: 2018
  4. HUMIRA [Suspect]
     Active Substance: ADALIMUMAB
     Route: 058
     Dates: start: 2023
  5. ETANERCEPT [Concomitant]
     Active Substance: ETANERCEPT
     Indication: Juvenile idiopathic arthritis
     Route: 065
     Dates: start: 2019
  6. AZACITIDINE [Concomitant]
     Active Substance: AZACITIDINE
     Indication: Inflammatory bowel disease
     Route: 065
     Dates: start: 2021, end: 202209

REACTIONS (11)
  - Focal peritonitis [Recovered/Resolved]
  - Stomatitis [Recovered/Resolved]
  - Hyperthermia [Recovered/Resolved]
  - Upper respiratory tract infection [Recovered/Resolved]
  - Fistula [Recovered/Resolved]
  - Upper respiratory tract infection [Recovered/Resolved]
  - Furuncle [Recovered/Resolved]
  - Weight decreased [Unknown]
  - Faecal calprotectin increased [Unknown]
  - Inflammatory bowel disease [Unknown]
  - Arthropathy [Unknown]

NARRATIVE: CASE EVENT DATE: 20160101
